FAERS Safety Report 16772774 (Version 1)
Quarter: 2019Q3

REPORT INFORMATION
  Report Type: Spontaneous
  Country: US (occurrence: US)
  Receive Date: 20190904
  Receipt Date: 20190904
  Transmission Date: 20191005
  Serious: No
  Sender: FDA-Public Use
  Company Number: US-ELI_LILLY_AND_COMPANY-US201908014174

PATIENT
  Age: 49 Year
  Sex: Female

DRUGS (1)
  1. EMGALITY [Suspect]
     Active Substance: GALCANEZUMAB-GNLM
     Indication: CLUSTER HEADACHE
     Dosage: 1 DOSAGE FORM, UNKNOWN
     Route: 065

REACTIONS (10)
  - Tremor [Recovered/Resolved]
  - Blood pressure decreased [Recovered/Resolved]
  - Injection site pain [Recovered/Resolved]
  - Hyperhidrosis [Recovered/Resolved]
  - Dry mouth [Recovered/Resolved]
  - Claustrophobia [Recovered/Resolved]
  - Disturbance in attention [Recovered/Resolved]
  - Malaise [Recovered/Resolved]
  - Nausea [Recovered/Resolved]
  - Feeling abnormal [Recovered/Resolved]

NARRATIVE: CASE EVENT DATE: 20190816
